FAERS Safety Report 8622179-8 (Version None)
Quarter: 2012Q3

REPORT INFORMATION
  Report Type: 
  Country: None (occurrence: None)
  Receive Date: 20120826
  Receipt Date: 20120813
  Transmission Date: 20120928
  Serious: Yes (Other)
  Sender: FDA-Public Use
  Company Number: US-MYLANLABS-2012S1016833

PATIENT
  Age: 1 Year
  Sex: Male
  Weight: 11.79 kg

DRUGS (1)
  1. ONDANSETRON [Suspect]
     Route: 048
     Dates: start: 20120810

REACTIONS (2)
  - ACCIDENTAL DRUG INTAKE BY CHILD [None]
  - SOMNOLENCE [None]
